FAERS Safety Report 6395206-9 (Version None)
Quarter: 2009Q4

REPORT INFORMATION
  Report Type: 
  Country: None (occurrence: None)
  Receive Date: 20091009
  Receipt Date: 20091007
  Transmission Date: 20100525
  Serious: Yes (Death)
  Sender: FDA-Public Use
  Company Number: JP-JNJFOC-20091000117

PATIENT
  Age: 49 Year
  Sex: Female

DRUGS (5)
  1. DUROTEP [Suspect]
     Indication: PAIN
     Route: 062
  2. PN TWIN [Concomitant]
     Route: 042
  3. VITAJECT [Concomitant]
     Route: 042
  4. DEXART [Concomitant]
     Route: 042
  5. OPSO [Concomitant]
     Route: 048

REACTIONS (1)
  - HEPATIC NEOPLASM MALIGNANT [None]
